FAERS Safety Report 22921462 (Version 2)
Quarter: 2024Q2

REPORT INFORMATION
  Report Type: Spontaneous
  Country: US (occurrence: US)
  Receive Date: 20230908
  Receipt Date: 20240624
  Transmission Date: 20240715
  Serious: Yes (Other)
  Sender: FDA-Public Use
  Company Number: US-FARMAPROD-202306-1886

PATIENT
  Age: 73 Year
  Sex: Female
  Weight: 55.57 kg

DRUGS (62)
  1. OXERVATE [Suspect]
     Active Substance: CENEGERMIN-BKBJ
     Indication: Neurotrophic keratopathy
     Route: 047
     Dates: start: 20230616, end: 20230807
  2. OXERVATE [Suspect]
     Active Substance: CENEGERMIN-BKBJ
     Route: 047
     Dates: start: 20231023, end: 20231218
  3. OXERVATE [Suspect]
     Active Substance: CENEGERMIN-BKBJ
     Route: 047
     Dates: start: 20240513
  4. OXERVATE [Suspect]
     Active Substance: CENEGERMIN-BKBJ
  5. OXERVATE [Suspect]
     Active Substance: CENEGERMIN-BKBJ
  6. OXERVATE [Suspect]
     Active Substance: CENEGERMIN-BKBJ
  7. OXERVATE [Suspect]
     Active Substance: CENEGERMIN-BKBJ
  8. OXERVATE [Suspect]
     Active Substance: CENEGERMIN-BKBJ
  9. OXERVATE [Suspect]
     Active Substance: CENEGERMIN-BKBJ
  10. OXERVATE [Suspect]
     Active Substance: CENEGERMIN-BKBJ
  11. OXERVATE [Suspect]
     Active Substance: CENEGERMIN-BKBJ
  12. ZIOPTAN [Concomitant]
     Active Substance: TAFLUPROST
  13. ZIOPTAN [Concomitant]
     Active Substance: TAFLUPROST
  14. DORZOLAMIDE\TIMOLOL [Concomitant]
     Active Substance: DORZOLAMIDE\TIMOLOL
  15. ALPHAGAN P [Concomitant]
     Active Substance: BRIMONIDINE TARTRATE
  16. ALPHAGAN P [Concomitant]
     Active Substance: BRIMONIDINE TARTRATE
  17. ACETAMINOPHEN\HYDROCODONE [Concomitant]
     Active Substance: ACETAMINOPHEN\HYDROCODONE
  18. HYDROCHLOROTHIAZIDE [Concomitant]
     Active Substance: HYDROCHLOROTHIAZIDE
  19. HYDROCHLOROTHIAZIDE [Concomitant]
     Active Substance: HYDROCHLOROTHIAZIDE
  20. VALACYCLOVIR [Concomitant]
     Active Substance: VALACYCLOVIR HYDROCHLORIDE
  21. VALACYCLOVIR [Concomitant]
     Active Substance: VALACYCLOVIR HYDROCHLORIDE
  22. HYALURONIC ACID [Concomitant]
     Active Substance: HYALURONIC ACID
     Dosage: 30 MG/2 ML SYRINGE
  23. HYALURONIC ACID [Concomitant]
     Active Substance: HYALURONIC ACID
     Dosage: 30 MG/2 ML SYRINGE
  24. ONDANSETRON [Concomitant]
     Active Substance: ONDANSETRON
     Dosage: RAPID DISSOLVE TABLETS
  25. ONDANSETRON [Concomitant]
     Active Substance: ONDANSETRON
     Dosage: RAPID DISSOLVE TABLETS
  26. LIOTHYRONINE SODIUM [Concomitant]
     Active Substance: LIOTHYRONINE SODIUM
  27. LIOTHYRONINE SODIUM [Concomitant]
     Active Substance: LIOTHYRONINE SODIUM
  28. POTASSIUM CHLORIDE [Concomitant]
     Active Substance: POTASSIUM CHLORIDE
  29. POTASSIUM CHLORIDE [Concomitant]
     Active Substance: POTASSIUM CHLORIDE
  30. OFLOXACIN [Concomitant]
     Active Substance: OFLOXACIN
  31. OFLOXACIN [Concomitant]
     Active Substance: OFLOXACIN
  32. METHAZOLAMIDE [Concomitant]
     Active Substance: METHAZOLAMIDE
  33. METHAZOLAMIDE [Concomitant]
     Active Substance: METHAZOLAMIDE
  34. LEVOTHYROXINE SODIUM [Concomitant]
     Active Substance: LEVOTHYROXINE SODIUM
  35. LEVOTHYROXINE SODIUM [Concomitant]
     Active Substance: LEVOTHYROXINE SODIUM
  36. COSOPT [Concomitant]
     Active Substance: DORZOLAMIDE HYDROCHLORIDE\TIMOLOL MALEATE
     Dosage: 22.3-6.8/1.
  37. COSOPT [Concomitant]
     Active Substance: DORZOLAMIDE HYDROCHLORIDE\TIMOLOL MALEATE
     Dosage: 22.3-6.8/1.
  38. CASTOR OIL [Concomitant]
     Active Substance: CASTOR OIL
     Dosage: IN THE RIGHT EYE
  39. CASTOR OIL [Concomitant]
     Active Substance: CASTOR OIL
     Dosage: IN THE RIGHT EYE
  40. PREDNISOLONE-NEPAFENAC [Concomitant]
  41. VITAMIN C [Concomitant]
     Active Substance: ASCORBIC ACID
  42. VITAMIN C [Concomitant]
     Active Substance: ASCORBIC ACID
  43. SELENIUM [Concomitant]
     Active Substance: SELENIUM
  44. SELENIUM [Concomitant]
     Active Substance: SELENIUM
  45. FISH OIL [Concomitant]
     Active Substance: FISH OIL
     Dosage: 100-160 MG
  46. FISH OIL [Concomitant]
     Active Substance: FISH OIL
     Dosage: 100-160 MG
  47. MACA ROOT [Concomitant]
  48. TURMERIC-GINGER-BLACK PEPPER [Concomitant]
  49. NAC [Concomitant]
  50. NAC [Concomitant]
  51. DIGESTIVE ADVANTAGE ADVANCED [Concomitant]
  52. CINNAMON [Concomitant]
     Active Substance: CINNAMON
  53. CINNAMON [Concomitant]
     Active Substance: CINNAMON
  54. PROBIOTICS NOS [Concomitant]
     Active Substance: PROBIOTICS NOS
     Dosage: 10 BILLION CELL.
  55. PROBIOTICS NOS [Concomitant]
     Active Substance: PROBIOTICS NOS
     Dosage: 10 BILLION CELL.
  56. MENAQUINONE 6 [Concomitant]
     Active Substance: MENAQUINONE 6
  57. MENAQUINONE 6 [Concomitant]
     Active Substance: MENAQUINONE 6
  58. COQMAX-OMEGA [Concomitant]
     Dosage: 174 MG-50 MG
  59. COQMAX-OMEGA [Concomitant]
     Dosage: 174 MG-50 MG
  60. ARTIFICIAL TEARS [Concomitant]
  61. COSOPT PF [Concomitant]
     Active Substance: DORZOLAMIDE HYDROCHLORIDE\TIMOLOL MALEATE
     Dosage: 2 %-0.5 % DROPERETTE.
  62. COSOPT PF [Concomitant]
     Active Substance: DORZOLAMIDE HYDROCHLORIDE\TIMOLOL MALEATE
     Dosage: 2 %-0.5 % DROPERETTE.

REACTIONS (14)
  - Pneumonia [Not Recovered/Not Resolved]
  - Blood pressure increased [Not Recovered/Not Resolved]
  - Vision blurred [Recovered/Resolved]
  - Photophobia [Recovered/Resolved]
  - Insomnia [Not Recovered/Not Resolved]
  - Intraocular pressure increased [Recovering/Resolving]
  - Dry eye [Not Recovered/Not Resolved]
  - Headache [Recovering/Resolving]
  - Eye pain [Unknown]
  - Product preparation error [Unknown]
  - Eye oedema [Unknown]
  - Eye irritation [Unknown]
  - Oropharyngeal pain [Unknown]
  - Eye inflammation [Unknown]

NARRATIVE: CASE EVENT DATE: 20230616
